FAERS Safety Report 19642852 (Version 1)
Quarter: 2021Q3

REPORT INFORMATION
  Report Type: Spontaneous
  Country: FR (occurrence: FR)
  Receive Date: 20210730
  Receipt Date: 20210730
  Transmission Date: 20211014
  Serious: Yes (Hospitalization)
  Sender: FDA-Public Use
  Company Number: FR-PFIZER INC-202100924939

PATIENT
  Age: 58 Year
  Sex: Female
  Weight: 59 kg

DRUGS (9)
  1. COMIRNATY [Suspect]
     Active Substance: TOZINAMERAN
     Indication: COVID-19 IMMUNISATION
     Dosage: DOSE 2, SINGLE
     Route: 030
     Dates: start: 20210610, end: 20210610
  2. APROVEL [Concomitant]
     Active Substance: IRBESARTAN
     Dosage: 150 MG, DAILY
  3. LEVOTHYROX [Concomitant]
     Active Substance: LEVOTHYROXINE
     Dosage: 75 UG, DAILY
  4. SULFARLEM [Concomitant]
     Active Substance: ANETHOLTRITHION
     Dosage: 25 MG, 3X/DAY
  5. SEROPLEX [Concomitant]
     Active Substance: ESCITALOPRAM OXALATE
     Dosage: 5 MG, DAILY
     Dates: start: 202104, end: 202106
  6. PLAQUENIL [Concomitant]
     Active Substance: HYDROXYCHLOROQUINE SULFATE
     Dosage: UNK
  7. FERINJECT [Concomitant]
     Active Substance: FERRIC CARBOXYMALTOSE
     Dosage: UNK
     Dates: end: 202104
  8. MABTHERA [Suspect]
     Active Substance: RITUXIMAB
     Indication: SJOGREN^S SYNDROME
     Dosage: 500 MG EVERY 6 MONTHS
     Route: 042
     Dates: start: 20191201, end: 20210617
  9. SOLU?MEDROL [Suspect]
     Active Substance: METHYLPREDNISOLONE SODIUM SUCCINATE
     Indication: SJOGREN^S SYNDROME
     Dosage: 100 MG
     Route: 042
     Dates: start: 20210617, end: 20210617

REACTIONS (1)
  - Meningitis herpes [Recovering/Resolving]

NARRATIVE: CASE EVENT DATE: 20210620
